FAERS Safety Report 4812692-3 (Version None)
Quarter: 2005Q4

REPORT INFORMATION
  Report Type: 
  Country: None (occurrence: None)
  Receive Date: 20051028
  Receipt Date: 20041108
  Transmission Date: 20060501
  Serious: No
  Sender: FDA-Public Use
  Company Number: US-GLAXOSMITHKLINE-A0533088A

PATIENT
  Age: 70 Year
  Sex: Male
  Weight: 93.2 kg

DRUGS (8)
  1. ADVAIR DISKUS 100/50 [Suspect]
     Indication: CHRONIC OBSTRUCTIVE PULMONARY DISEASE
     Dosage: 1PUFF TWICE PER DAY
     Route: 055
  2. DAYPRO [Concomitant]
     Dosage: 100MG PER DAY
     Route: 048
  3. SINGULAIR [Concomitant]
     Dosage: 10MG PER DAY
     Route: 048
  4. LESCOL [Concomitant]
     Dosage: 80MG PER DAY
     Route: 048
  5. ELAVIL [Concomitant]
     Dosage: 10MG PER DAY
     Route: 048
  6. QUININE SULFATE [Concomitant]
     Route: 048
  7. ALBUTEROL [Concomitant]
  8. ALBUTEROL SULFATE [Concomitant]
     Dosage: 90MCG AS REQUIRED

REACTIONS (2)
  - DYSPNOEA [None]
  - NO ADVERSE EFFECT [None]
